FAERS Safety Report 23305137 (Version 2)
Quarter: 2023Q4

REPORT INFORMATION
  Report Type: Report from Study
  Country: US (occurrence: US)
  Receive Date: 20231218
  Receipt Date: 20231221
  Transmission Date: 20240109
  Serious: Yes (Hospitalization, Other)
  Sender: FDA-Public Use
  Company Number: US-ABBVIE-5541123

PATIENT
  Sex: Male
  Weight: 111 kg

DRUGS (3)
  1. DUOPA [Suspect]
     Active Substance: CARBIDOPA\LEVODOPA
     Indication: Parkinson^s disease
     Dosage: START DATE TEXT: 3 MONTHS AGO
     Route: 050
     Dates: start: 202309
  2. DUOPA [Suspect]
     Active Substance: CARBIDOPA\LEVODOPA
  3. FLUDROCORTISONE [Concomitant]
     Active Substance: FLUDROCORTISONE
     Indication: Hypotension

REACTIONS (7)
  - Hip fracture [Recovering/Resolving]
  - Fall [Recovering/Resolving]
  - Hallucination [Recovered/Resolved]
  - Pain [Unknown]
  - Procedural pain [Recovering/Resolving]
  - Back pain [Recovering/Resolving]
  - Movement disorder [Recovering/Resolving]

NARRATIVE: CASE EVENT DATE: 20230101
